FAERS Safety Report 6244020-3 (Version None)
Quarter: 2009Q2

REPORT INFORMATION
  Report Type: 
  Country: None (occurrence: None)
  Receive Date: 20090623
  Receipt Date: 20090618
  Transmission Date: 20091009
  Serious: Yes (Death, Hospitalization)
  Sender: FDA-Public Use
  Company Number: 2009SP013302

PATIENT
  Age: 38 Year
  Sex: Male

DRUGS (1)
  1. TEMODAL [Suspect]
     Indication: GLIOBLASTOMA
     Dosage: ; QD;
     Dates: start: 20090226

REACTIONS (18)
  - ACUTE MYELOID LEUKAEMIA [None]
  - CARDIAC ARREST [None]
  - CSF PRESSURE INCREASED [None]
  - GASTROINTESTINAL HAEMORRHAGE [None]
  - HEPATIC CONGESTION [None]
  - HEPATIC NEOPLASM [None]
  - LUNG NEOPLASM [None]
  - LYMPHADENOPATHY [None]
  - MENINGEAL DISORDER [None]
  - PETECHIAE [None]
  - PLEURAL EFFUSION [None]
  - PULMONARY OEDEMA [None]
  - RENAL DISORDER [None]
  - SINUSITIS [None]
  - SPLENIC HAEMORRHAGE [None]
  - TESTICULAR NEOPLASM [None]
  - THROMBOCYTOPENIA [None]
  - TONSILLAR NEOPLASM [None]
